FAERS Safety Report 16298923 (Version 7)
Quarter: 2021Q1

REPORT INFORMATION
  Report Type: Spontaneous
  Country: US (occurrence: US)
  Receive Date: 20190510
  Receipt Date: 20210126
  Transmission Date: 20210419
  Serious: Yes (Other)
  Sender: FDA-Public Use
  Company Number: US-PFIZER INC-2019194393

PATIENT
  Age: 58 Year
  Sex: Male
  Weight: 95 kg

DRUGS (3)
  1. CAVERJECT [Suspect]
     Active Substance: ALPROSTADIL
     Dosage: STRENGTH: 30 MCG
  2. CAVERJECT [Suspect]
     Active Substance: ALPROSTADIL
     Indication: SEXUAL DYSFUNCTION
     Dosage: 20 MG, UNK (20MG, NO MORE THAN THREE TIMES A WEEK)/ ( SINGLE DOSE VIALS IN EACH PACKAGE)
  3. CAVERJECT [Suspect]
     Active Substance: ALPROSTADIL
     Dosage: 20 UG, AS NEEDED

REACTIONS (5)
  - Retinopathy solar [Unknown]
  - Product prescribing error [Unknown]
  - Blindness [Unknown]
  - Condition aggravated [Unknown]
  - Product dispensing error [Unknown]
